FAERS Safety Report 18794957 (Version 3)
Quarter: 2021Q1

REPORT INFORMATION
  Report Type: Spontaneous
  Country: FR (occurrence: FR)
  Receive Date: 20210127
  Receipt Date: 20210301
  Transmission Date: 20210419
  Serious: Yes (Hospitalization, Other)
  Sender: FDA-Public Use
  Company Number: FR-ALK-ABELLO A/S-2105912

PATIENT
  Age: 12 Year
  Sex: Male
  Weight: 37 kg

DRUGS (7)
  1. GRASTEK [Suspect]
     Active Substance: PHLEUM PRATENSE POLLEN
     Indication: IMMUNE TOLERANCE INDUCTION
     Route: 060
  2. CETIRIZINE [Concomitant]
     Active Substance: CETIRIZINE HYDROCHLORIDE
  3. SPASFON [Concomitant]
  4. PRIMALAN [Concomitant]
     Active Substance: MEQUITAZINE
     Dates: end: 20190810
  5. DESLORATADINE. [Concomitant]
     Active Substance: DESLORATADINE
  6. SINGULAIR [Concomitant]
     Active Substance: MONTELUKAST SODIUM
  7. VENTOLIN HFA [Concomitant]
     Active Substance: ALBUTEROL SULFATE

REACTIONS (2)
  - Gastric ulcer perforation [Unknown]
  - Abdominal pain [Unknown]
